FAERS Safety Report 12372467 (Version 1)
Quarter: 2016Q2

REPORT INFORMATION
  Report Type: Spontaneous
  Country: IE (occurrence: IE)
  Receive Date: 20160516
  Receipt Date: 20160516
  Transmission Date: 20160815
  Serious: Yes (Death, Hospitalization, Other)
  Sender: FDA-Public Use
  Company Number: IE-BRISTOL-MYERS SQUIBB COMPANY-BMS-2016-031743

PATIENT
  Age: 64 Year
  Sex: Male

DRUGS (2)
  1. CLARITHROMYCIN. [Interacting]
     Active Substance: CLARITHROMYCIN
     Indication: ANTIBIOTIC THERAPY
     Route: 048
  2. APIXABAN [Suspect]
     Active Substance: APIXABAN
     Indication: PRODUCT USED FOR UNKNOWN INDICATION
     Route: 048

REACTIONS (7)
  - Constipation [Unknown]
  - Gastrointestinal haemorrhage [Fatal]
  - Drug interaction [Unknown]
  - Respiratory rate increased [Unknown]
  - Vomiting [Unknown]
  - Breath sounds abnormal [Unknown]
  - Dysphagia [Unknown]

NARRATIVE: CASE EVENT DATE: 20141201
